FAERS Safety Report 24369350 (Version 1)
Quarter: 2024Q3

REPORT INFORMATION
  Report Type: Spontaneous
  Country: JP (occurrence: JP)
  Receive Date: 20240927
  Receipt Date: 20240927
  Transmission Date: 20241017
  Serious: Yes (Other)
  Sender: MERCK
  Company Number: JP-MSD-2409JPN003387J

PATIENT
  Age: 30 Year
  Sex: Female

DRUGS (8)
  1. BELSOMRA [Suspect]
     Active Substance: SUVOREXANT
     Indication: Initial insomnia
     Dosage: 20 MILLIGRAM, QD
     Route: 048
     Dates: start: 20231017, end: 20231019
  2. BELSOMRA [Suspect]
     Active Substance: SUVOREXANT
     Dosage: 15 MILLIGRAM
     Route: 048
     Dates: start: 20231020, end: 20231024
  3. ZYPREXA [Concomitant]
     Active Substance: OLANZAPINE
     Dosage: UNK
     Route: 048
     Dates: start: 20230904, end: 20231022
  4. JUMIHAIDOKUTO [ARALIA CORDATA RHIZOME;BUPLEURUM FALCATUM ROOT;GLYCYRRH [Concomitant]
     Dosage: UNK
     Route: 048
     Dates: start: 20231012
  5. HERBALS [Concomitant]
     Active Substance: HERBALS
     Dosage: UNK
     Route: 048
     Dates: start: 20230911
  6. MAGNESIUM OXIDE [Concomitant]
     Active Substance: MAGNESIUM OXIDE
     Dosage: UNK
     Route: 048
     Dates: start: 20230904
  7. REXULTI [Concomitant]
     Active Substance: BREXPIPRAZOLE
     Dosage: UNK
     Route: 048
     Dates: start: 20231010, end: 20231024
  8. URAPIDIL [Concomitant]
     Active Substance: URAPIDIL
     Dosage: UNK
     Route: 048
     Dates: start: 20231020, end: 20231024

REACTIONS (2)
  - Urinary retention [Recovered/Resolved]
  - Underdose [Unknown]

NARRATIVE: CASE EVENT DATE: 20231020
